FAERS Safety Report 8474288-4 (Version None)
Quarter: 2012Q2

REPORT INFORMATION
  Report Type: 
  Country: None (occurrence: None)
  Receive Date: 20120628
  Receipt Date: 20120614
  Transmission Date: 20120825
  Serious: Yes (Other)
  Sender: FDA-Public Use
  Company Number: SE-UCBSA-059797

PATIENT
  Age: 74 Year
  Sex: Female

DRUGS (2)
  1. SANDIMMUNE [Concomitant]
     Dosage: 125,125 MG
     Dates: start: 20101207, end: 20101207
  2. CIMZIA [Suspect]
     Indication: RHEUMATOID ARTHRITIS
     Dosage: 200,200,MG
     Dates: start: 20111123, end: 20120118

REACTIONS (1)
  - TOXIC SKIN ERUPTION [None]
